FAERS Safety Report 9761252 (Version 1)
Quarter: 2013Q4

REPORT INFORMATION
  Report Type: Spontaneous
  Country: JP (occurrence: JP)
  Receive Date: 20131216
  Receipt Date: 20131216
  Transmission Date: 20140711
  Serious: Yes (Life-Threatening, Hospitalization)
  Sender: FDA-Public Use
  Company Number: JP-ASTRAZENECA-2013SE90937

PATIENT
  Age: 75 Year
  Sex: Male

DRUGS (20)
  1. NEXIUM [Suspect]
     Indication: PROPHYLAXIS AGAINST GASTROINTESTINAL ULCER
     Route: 048
     Dates: start: 20131127
  2. SOLANAX [Suspect]
     Dosage: AS REQUIRED
     Route: 065
     Dates: start: 20131207
  3. TENELIA [Suspect]
     Indication: TYPE 2 DIABETES MELLITUS
     Route: 048
     Dates: start: 20131207, end: 20131209
  4. LANTUS [Concomitant]
     Indication: TYPE 2 DIABETES MELLITUS
     Dosage: DOSE UNKNOWN
     Route: 065
     Dates: start: 20131127
  5. NOVORAPID [Concomitant]
     Indication: TYPE 2 DIABETES MELLITUS
     Dosage: DOSE UNKNOWN
     Route: 065
     Dates: start: 20131127
  6. MICARDIS [Concomitant]
     Dosage: 40 MG TWICE A DAY (AFTER BREAKFAST AND EVENING MEAL)
     Route: 048
  7. ATELEC [Concomitant]
     Dosage: 10 MG TWICE A DAY (AFTER BREAKFAST AND EVENING MEAL)
     Route: 048
  8. LENDORMIN D [Concomitant]
     Dosage: 0.25 MG DALY (BEFORE BEDTIME)
     Route: 048
  9. ARTIST [Concomitant]
     Dosage: 10MG DAILY (AFTER BREAKFAST)
     Route: 048
  10. LIVALO [Concomitant]
     Dosage: 2 MG DAILY (AFTER EVENING MEAL)
     Route: 048
  11. ARGAMATE [Concomitant]
     Dosage: 25 G DAILY (AFTER EVENING MEAL)
     Route: 065
  12. PRORENAL [Concomitant]
     Dosage: 5 UG TWICE A DAY (AFTER BREAKFAST AND EVENING MEAL)
     Route: 048
  13. TRAMCET [Concomitant]
     Dosage: AFTER BREAKFAST AND EVENING MEAL
     Route: 048
  14. METHYCOBAL [Concomitant]
     Dosage: 500 UG TWICE A DAY (AFTER BREAKFAST AND EVENING MEAL)
     Route: 048
  15. NEUROTROPIN [Concomitant]
     Dosage: 4 IU TWICE A DAY (AFTER BREAKFAST AND EVENING MEAL)
     Route: 048
  16. TERNELIN [Concomitant]
     Dosage: 1 MG TWICE A DAY (AFTER BREAKFAST AND EVENING MEAL)
     Route: 048
  17. LYRICA [Concomitant]
     Dosage: 25 MG TWICE A DAY (AFTER BREAKFAST AND EVENING MEAL)
     Route: 048
  18. DEPAS [Concomitant]
     Dosage: 0.5 MG THREE TIMES A DAY (AFTER EVERY MEAL)
     Route: 048
  19. PURSENNID [Concomitant]
     Dosage: DOSE UNKNOWN
     Route: 065
  20. GLUCOSE [Concomitant]
     Dosage: AS REQUIRED
     Route: 065

REACTIONS (3)
  - Angina unstable [Recovered/Resolved]
  - Blood creatine phosphokinase MB increased [Unknown]
  - Troponin T increased [Unknown]
